FAERS Safety Report 9817770 (Version 3)
Quarter: 2014Q1

REPORT INFORMATION
  Report Type: Report from Study
  Country: DE (occurrence: DE)
  Receive Date: 20140115
  Receipt Date: 20140116
  Transmission Date: 20141002
  Serious: Yes (Hospitalization)
  Sender: FDA-Public Use
  Company Number: DE-UCBSA-087574

PATIENT
  Age: 76 Year
  Sex: Female

DRUGS (11)
  1. CERTOLIZUMAB PEGOL [Suspect]
     Indication: RHEUMATOID ARTHRITIS
     Route: 058
     Dates: start: 20100928, end: 20121030
  2. ULCOGANT [Concomitant]
     Indication: GASTRIC DISORDER
     Dates: start: 200802
  3. PANTOZOLE [Concomitant]
     Indication: GASTRIC DISORDER
     Dates: start: 200702
  4. FOLIC ACID [Concomitant]
     Indication: RHEUMATOID ARTHRITIS
     Dosage: QUANITITY SUFFICIENT
     Dates: start: 20070122
  5. AMITRIPTYLINE [Concomitant]
     Indication: FIBROMYALGIA
     Dates: start: 20081111
  6. ACTONE [Concomitant]
     Indication: OSTEOPOROSIS
     Dosage: QUANTITY SUFFICIENT
     Dates: start: 2000
  7. METHOTREXATE [Concomitant]
     Indication: RHEUMATOID ARTHRITIS
     Dates: start: 20070622
  8. PREDNISOLONE [Concomitant]
     Indication: RHEUMATOID ARTHRITIS
     Dates: start: 20070624
  9. ATMADISC [Concomitant]
     Dosage: DOSE: 50/100 MG
  10. CALCILAC [Concomitant]
     Indication: OSTEOPOROSIS
     Dates: start: 20080513
  11. LYRICA [Concomitant]
     Indication: FIBROMYALGIA
     Dates: start: 20120720

REACTIONS (2)
  - Diarrhoea [Recovered/Resolved]
  - Genital haemorrhage [Recovered/Resolved]
